FAERS Safety Report 6188131-X (Version None)
Quarter: 2009Q2

REPORT INFORMATION
  Report Type: 
  Country: None (occurrence: None)
  Receive Date: 20090513
  Receipt Date: 20080501
  Transmission Date: 20091009
  Serious: No
  Sender: FDA-Public Use
  Company Number: A0726082A

PATIENT
  Sex: Female

DRUGS (1)
  1. DYNACIRC [Suspect]
     Indication: HYPERTENSION
     Route: 048

REACTIONS (2)
  - HEADACHE [None]
  - NECK PAIN [None]
